FAERS Safety Report 6203129-0 (Version None)
Quarter: 2009Q2

REPORT INFORMATION
  Report Type: 
  Country: None (occurrence: None)
  Receive Date: 20090527
  Receipt Date: 20090514
  Transmission Date: 20091009
  Serious: Yes (Other)
  Sender: FDA-Public Use
  Company Number: BE-RANBAXY-2009RR-23196

PATIENT
  Age: 64 Year
  Sex: Female
  Weight: 53 kg

DRUGS (8)
  1. FUROSEMIDE [Suspect]
     Dosage: 40 MG, UNK
     Route: 042
  2. PROPOFOL [Suspect]
     Indication: INDUCTION AND MAINTENANCE OF ANAESTHESIA
     Dosage: 2 MG/KG, UNK
  3. PROPOFOL [Suspect]
     Dosage: 6-7 MG/KG/HOUR
  4. REMIFENTANIL [Suspect]
     Indication: ANAESTHESIA
     Dosage: 0.15 UNK, UNK
  5. CISATRACURIUM [Suspect]
     Dosage: 12 MG, UNK
  6. METHYLPREDNISOLONE [Suspect]
     Dosage: 1000 MG, UNK
     Route: 042
  7. MANNITOL [Suspect]
     Dosage: 100 ML, UNK
  8. PHENYLEPHRINE [Concomitant]
     Dosage: 0.3 UNK, UNK

REACTIONS (2)
  - LACTIC ACIDOSIS [None]
  - METABOLIC ALKALOSIS [None]
